FAERS Safety Report 16765824 (Version 1)
Quarter: 2019Q3

REPORT INFORMATION
  Report Type: Spontaneous
  Country: US (occurrence: US)
  Receive Date: 20190903
  Receipt Date: 20190903
  Transmission Date: 20191005
  Serious: Yes (Hospitalization)
  Sender: FDA-Public Use
  Company Number: US-IPSEN BIOPHARMACEUTICALS, INC.-2019-15216

PATIENT
  Age: 72 Year
  Sex: Male
  Weight: 115 kg

DRUGS (19)
  1. LIDOCAINE/PRILOCAINE [Concomitant]
     Active Substance: LIDOCAINE\PRILOCAINE
     Dosage: APPLY CREAM TOPICALLY EVERY 48 HR 30 MIN BEFORE DIALYSIS OVER AVF
     Route: 061
     Dates: start: 20190301
  2. CLONIDINE HCL [Concomitant]
     Active Substance: CLONIDINE HYDROCHLORIDE
     Route: 048
     Dates: start: 20190727
  3. PANTOPRAZOLE [Concomitant]
     Active Substance: PANTOPRAZOLE
     Route: 048
     Dates: start: 20190313
  4. ALLOPURINOL. [Concomitant]
     Active Substance: ALLOPURINOL
     Route: 048
     Dates: start: 20190301
  5. ASPIRIN. [Concomitant]
     Active Substance: ASPIRIN
     Dosage: 81 MG EC
     Route: 048
     Dates: start: 20190619
  6. ATORVASTATIN CALCIUM. [Concomitant]
     Active Substance: ATORVASTATIN CALCIUM
     Indication: BLOOD CHOLESTEROL
     Route: 048
     Dates: start: 20190604
  7. CHOLECALCIFEROL [Concomitant]
     Active Substance: CHOLECALCIFEROL
     Dosage: (VIT D3) 1000 UNIT
     Route: 048
     Dates: start: 20190301
  8. HEPARIN [Concomitant]
     Active Substance: HEPARIN SODIUM
     Dosage: 1900 UNITS/1.9 ML IV TO LOCK ARTERIAL DIALYSIS CATHETER AND LOCK VENOUS DIALYSIS CATHETER
     Route: 042
     Dates: start: 20190405
  9. CALCIUM [Concomitant]
     Active Substance: CALCIUM
     Dosage: (CA CARB- 1.2 GM)
     Route: 048
     Dates: start: 20190619
  10. FUROSEMIDE. [Concomitant]
     Active Substance: FUROSEMIDE
     Route: 048
     Dates: start: 20190619
  11. INSULIN GLARGINE [Concomitant]
     Active Substance: INSULIN GLARGINE
     Dosage: 100 UNIT/ML, INJECT 24 UNIT UNDER THE SKIN AT BEDTIME FOR DIABETES
     Route: 058
     Dates: start: 20190627
  12. SEVELAMER CARBONATE. [Concomitant]
     Active Substance: SEVELAMER CARBONATE
     Route: 048
     Dates: start: 20190501
  13. SOMATULINE DEPOT [Suspect]
     Active Substance: LANREOTIDE ACETATE
     Indication: NEUROENDOCRINE TUMOUR
     Route: 065
     Dates: start: 20180316
  14. DOCUSATE [Concomitant]
     Active Substance: DOCUSATE
     Dosage: 8.6 MG
     Route: 048
     Dates: start: 20190513
  15. LIDOCAINE. [Concomitant]
     Active Substance: LIDOCAINE
     Dosage: APPLY 1 PATCH TO THE SKIN EVERY DAY TO PAINFUL AREA, REMOVE AFTER 12 HR.
     Dates: start: 20190329
  16. ACETAMINOPHEN. [Concomitant]
     Active Substance: ACETAMINOPHEN
     Indication: PAIN
     Dosage: AS NEEDED FOR RIB PAIN
     Route: 048
     Dates: start: 20190702
  17. DEXTROSE. [Concomitant]
     Active Substance: DEXTROSE
     Dosage: 15 GM/37.5 GM SQUEEZE TUBE  EVERY DAY (AS DIRECTED)
     Route: 048
     Dates: start: 20190602
  18. SERTRALINE HCL [Concomitant]
     Active Substance: SERTRALINE HYDROCHLORIDE
     Route: 048
     Dates: start: 20190301
  19. AMLODIPINE BESYLATE. [Concomitant]
     Active Substance: AMLODIPINE BESYLATE
     Route: 048
     Dates: start: 20190301

REACTIONS (5)
  - Staphylococcal sepsis [Not Recovered/Not Resolved]
  - Endocarditis [Not Recovered/Not Resolved]
  - Osteomyelitis [Not Recovered/Not Resolved]
  - Treatment noncompliance [Unknown]
  - Product dose omission [Unknown]

NARRATIVE: CASE EVENT DATE: 20190826
